FAERS Safety Report 5265949-9 (Version None)
Quarter: 2007Q1

REPORT INFORMATION
  Report Type: 
  Country: None (occurrence: None)
  Receive Date: 20070314
  Receipt Date: 20070314
  Transmission Date: 20070707
  Serious: Yes (Other)
  Sender: FDA-Public Use
  Company Number: None

PATIENT
  Age: 27 Year
  Sex: Female

DRUGS (1)
  1. TUBERSOL [Suspect]
     Dosage: INTRADERMAL LEFT FOREARM
     Route: 023
     Dates: start: 20070307

REACTIONS (4)
  - INJECTION SITE PAIN [None]
  - INJECTION SITE RASH [None]
  - INJECTION SITE SWELLING [None]
  - RASH ERYTHEMATOUS [None]
